FAERS Safety Report 11010588 (Version 4)
Quarter: 2015Q2

REPORT INFORMATION
  Report Type: Spontaneous
  Country: US (occurrence: US)
  Receive Date: 20150410
  Receipt Date: 20150625
  Transmission Date: 20150821
  Serious: Yes (Death, Hospitalization, Disabling)
  Sender: FDA-Public Use
  Company Number: US-JNJFOC-20150404134

PATIENT
  Age: 69 Year
  Sex: Male
  Weight: 90.72 kg

DRUGS (4)
  1. XARELTO [Suspect]
     Active Substance: RIVAROXABAN
     Indication: CEREBROVASCULAR ACCIDENT PROPHYLAXIS
     Route: 048
     Dates: start: 20140402
  2. VELCADE [Concomitant]
     Active Substance: BORTEZOMIB
     Indication: LYMPHOPLASMACYTOID LYMPHOMA/IMMUNOCYTOMA
     Route: 065
  3. XARELTO [Suspect]
     Active Substance: RIVAROXABAN
     Indication: ATRIAL FIBRILLATION
     Route: 048
     Dates: start: 20140402
  4. DECADRON [Concomitant]
     Active Substance: DEXAMETHASONE
     Indication: LYMPHOPLASMACYTOID LYMPHOMA/IMMUNOCYTOMA
     Route: 065

REACTIONS (3)
  - Pneumonia [Recovering/Resolving]
  - Spinal epidural haematoma [Fatal]
  - Paralysis [Recovering/Resolving]

NARRATIVE: CASE EVENT DATE: 201503
